FAERS Safety Report 9682294 (Version 2)
Quarter: 2013Q4

REPORT INFORMATION
  Report Type: Spontaneous
  Country: US (occurrence: US)
  Receive Date: 20131112
  Receipt Date: 20131115
  Transmission Date: 20140711
  Serious: No
  Sender: FDA-Public Use
  Company Number: US-009507513-1311USA002904

PATIENT
  Age: 70 Year
  Sex: Male

DRUGS (2)
  1. PEGINTRON [Suspect]
     Indication: HEPATITIS C
     Dosage: 1 INJECTION, QW, REDIPEN
     Dates: start: 201309
  2. REBETOL [Suspect]
     Route: 048

REACTIONS (9)
  - Cognitive disorder [Recovering/Resolving]
  - Mental disorder [Recovering/Resolving]
  - Frustration [Recovering/Resolving]
  - Anger [Recovering/Resolving]
  - Stress [Recovering/Resolving]
  - Drug dose omission [Unknown]
  - Product quality issue [Unknown]
  - Suicidal ideation [Recovering/Resolving]
  - Depressed mood [Recovering/Resolving]
